FAERS Safety Report 9859728 (Version 1)
Quarter: 2014Q1

REPORT INFORMATION
  Report Type: Spontaneous
  Country: MX (occurrence: MX)
  Receive Date: 20140131
  Receipt Date: 20140131
  Transmission Date: 20141002
  Serious: Yes (Death)
  Sender: FDA-Public Use
  Company Number: MX-PFIZER INC-2014029550

PATIENT
  Age: 80 Year
  Sex: Female
  Weight: 60 kg

DRUGS (3)
  1. CELEBREX [Suspect]
     Indication: FRACTURE
     Dosage: UNK
     Dates: start: 2012
  2. LYRICA [Suspect]
     Indication: FRACTURE
     Dosage: UNK
     Dates: start: 2012
  3. TRADOL [Concomitant]
     Indication: PAIN
     Dosage: UNK, 3X/DAY
     Dates: start: 2012

REACTIONS (2)
  - Off label use [Fatal]
  - Pulmonary fibrosis [Fatal]
